FAERS Safety Report 7341776-3 (Version None)
Quarter: 2011Q1

REPORT INFORMATION
  Report Type: 
  Country: None (occurrence: None)
  Receive Date: 20110309
  Receipt Date: 20110305
  Transmission Date: 20110831
  Serious: Yes (Other)
  Sender: FDA-Public Use
  Company Number: US-PFIZER INC-2011048419

PATIENT
  Sex: Female

DRUGS (2)
  1. LYRICA [Suspect]
     Dosage: 300 MG, UNK
     Dates: start: 20110304
  2. LYRICA [Suspect]
     Dosage: 150 MG, 4X/DAY

REACTIONS (8)
  - SWOLLEN TONGUE [None]
  - VISION BLURRED [None]
  - NAUSEA [None]
  - EYELID OEDEMA [None]
  - SWELLING FACE [None]
  - SPEECH DISORDER [None]
  - DISTURBANCE IN ATTENTION [None]
  - PAIN [None]
